FAERS Safety Report 7622456-3 (Version None)
Quarter: 2011Q3

REPORT INFORMATION
  Report Type: 
  Country: None (occurrence: None)
  Receive Date: 20110720
  Receipt Date: 20110706
  Transmission Date: 20111222
  Serious: Yes (Other)
  Sender: FDA-Public Use
  Company Number: IN-RANBAXY-2011RR-46081

PATIENT
  Age: 25 Year
  Sex: Female

DRUGS (2)
  1. DOTHIEPIN HYDROCHLORIDE [Suspect]
     Indication: DEPRESSION
     Route: 065
  2. SERTRALINE HYDROCHLORIDE [Suspect]
     Indication: DEPRESSION
     Route: 065

REACTIONS (3)
  - DRUG INTERACTION [None]
  - HYPOMANIA [None]
  - EXTRAPYRAMIDAL DISORDER [None]
